FAERS Safety Report 14955878 (Version 1)
Quarter: 2018Q2

REPORT INFORMATION
  Report Type: Spontaneous
  Country: IR (occurrence: IR)
  Receive Date: 20180531
  Receipt Date: 20180531
  Transmission Date: 20180711
  Serious: Yes (Hospitalization)
  Sender: FDA-Public Use
  Company Number: IR-EMD SERONO-9028983

PATIENT
  Age: 30 Year
  Sex: Male

DRUGS (1)
  1. REBIF [Suspect]
     Active Substance: INTERFERON BETA-1A
     Indication: MULTIPLE SCLEROSIS
     Route: 058

REACTIONS (10)
  - Platelet count decreased [Recovered/Resolved]
  - Blood creatinine increased [Recovered/Resolved]
  - Haemoglobin decreased [Recovered/Resolved]
  - Mean cell volume abnormal [Recovered/Resolved]
  - Red blood cell count decreased [Recovered/Resolved]
  - Blood urea increased [Recovered/Resolved]
  - Haematocrit decreased [Recovered/Resolved]
  - Ecchymosis [Unknown]
  - Blood pressure decreased [Unknown]
  - Epistaxis [Unknown]
